FAERS Safety Report 8921906 (Version 3)
Quarter: 2012Q4

REPORT INFORMATION
  Report Type: 
  Country: AR (occurrence: AR)
  Receive Date: 20121121
  Receipt Date: 20121219
  Transmission Date: 20130627
  Serious: Yes (Hospitalization)
  Sender: FDA-Public Use
  Company Number: AR-PFIZER INC-2012287755

PATIENT
  Age: 75 Year
  Sex: Female

DRUGS (2)
  1. GENOTROPIN [Suspect]
     Indication: GROWTH HORMONE DEFICIENCY
     Dosage: 5.3 mg, 1x/day
     Route: 058
     Dates: start: 19960201
  2. LEVOTHYROXINE [Concomitant]
     Dosage: UNK

REACTIONS (1)
  - Cholelithiasis [Recovered/Resolved]
